FAERS Safety Report 24069430 (Version 3)
Quarter: 2024Q3

REPORT INFORMATION
  Report Type: Report from Study
  Country: CN (occurrence: CN)
  Receive Date: 20240710
  Receipt Date: 20240710
  Transmission Date: 20241016
  Serious: No
  Sender: ROCHE
  Company Number: CN-ROCHE-3139939

PATIENT
  Age: 66 Year
  Sex: Female
  Weight: 75.0 kg

DRUGS (21)
  1. ALECTINIB [Suspect]
     Active Substance: ALECTINIB
     Indication: Non-small cell lung cancer metastatic
     Route: 048
     Dates: start: 20220412
  2. COMPOUND KUSHEN INJECTION [Concomitant]
     Route: 050
     Dates: start: 20220508, end: 20220510
  3. COMPOUND KUSHEN INJECTION [Concomitant]
     Route: 042
     Dates: start: 20230706, end: 20230710
  4. CRIZOTINIB [Concomitant]
     Active Substance: CRIZOTINIB
     Dates: start: 20210329, end: 20220410
  5. CODEINE [Concomitant]
     Active Substance: CODEINE
     Route: 048
     Dates: start: 20230107, end: 20230107
  6. SPLEEN POLYPEPTIDE [Concomitant]
     Route: 050
     Dates: start: 20221009, end: 20221011
  7. INDAPAMIDE [Concomitant]
     Active Substance: INDAPAMIDE
     Indication: Hypertension
     Route: 048
     Dates: start: 202104, end: 202304
  8. NIFEDIPINE [Concomitant]
     Active Substance: NIFEDIPINE
     Indication: Hypertension
     Route: 048
     Dates: start: 20230224
  9. NIFEDIPINE [Concomitant]
     Active Substance: NIFEDIPINE
     Route: 048
     Dates: start: 20230614, end: 20230614
  10. POTASSIUM CHLORIDE [Concomitant]
     Active Substance: POTASSIUM CHLORIDE
     Indication: Hypokalaemia
     Route: 048
     Dates: start: 20230425, end: 20230807
  11. LEUCOGEN [Concomitant]
     Active Substance: LEUCOGEN
     Indication: Platelet count decreased
     Route: 048
     Dates: start: 20230520
  12. MANNITOL [Concomitant]
     Active Substance: MANNITOL
     Route: 042
     Dates: start: 20230710, end: 20230710
  13. IRBESARTAN [Concomitant]
     Active Substance: IRBESARTAN
     Indication: Hypertension
     Route: 048
     Dates: start: 20230706
  14. ACETYLCYSTEINE [Concomitant]
     Active Substance: ACETYLCYSTEINE
     Indication: Cough
     Route: 048
     Dates: start: 20230616, end: 202306
  15. COMPOUND PLATYCODON [Concomitant]
     Indication: Cough
     Route: 048
     Dates: start: 20230614, end: 202306
  16. ELEMENE [Concomitant]
     Route: 042
     Dates: start: 20230222, end: 20230301
  17. DOXOFYLLINE [Concomitant]
     Active Substance: DOXOFYLLINE
     Indication: Pneumonia viral
     Dates: start: 20230223, end: 20230228
  18. BUDESONIDE [Concomitant]
     Active Substance: BUDESONIDE
     Indication: Pneumonia viral
     Dates: start: 20230223, end: 20230302
  19. MAGNESIUM SULFATE [Concomitant]
     Active Substance: MAGNESIUM SULFATE\MAGNESIUM SULFATE HEPTAHYDRATE
     Route: 061
     Dates: start: 20230301, end: 20230302
  20. BEVACIZUMAB [Concomitant]
     Active Substance: BEVACIZUMAB
     Dates: start: 20230809, end: 20230809
  21. BEVACIZUMAB [Concomitant]
     Active Substance: BEVACIZUMAB
     Dates: start: 20230710, end: 20230710

REACTIONS (4)
  - Aspartate aminotransferase increased [Recovered/Resolved]
  - Alanine aminotransferase increased [Recovered/Resolved]
  - Hypercholesterolaemia [Recovered/Resolved]
  - Hypertriglyceridaemia [Not Recovered/Not Resolved]

NARRATIVE: CASE EVENT DATE: 20220509
